FAERS Safety Report 6523047-8 (Version None)
Quarter: 2009Q4

REPORT INFORMATION
  Report Type: 
  Country: None (occurrence: None)
  Receive Date: 20091222
  Receipt Date: 20091211
  Transmission Date: 20100525
  Serious: Yes (Hospitalization, Other)
  Sender: FDA-Public Use
  Company Number: 430017J09USA

PATIENT
  Age: 47 Year
  Sex: Female
  Weight: 37 kg

DRUGS (2)
  1. NOVANTRONE [Suspect]
     Indication: MULTIPLE SCLEROSIS
     Dosage: INTRAVENOUS
     Route: 042
     Dates: start: 20000101, end: 20020101
  2. REBIF [Suspect]
     Indication: MULTIPLE SCLEROSIS
     Dates: end: 20070101

REACTIONS (5)
  - DISEASE PROGRESSION [None]
  - DYSPHAGIA [None]
  - EJECTION FRACTION DECREASED [None]
  - INTERSTITIAL LUNG DISEASE [None]
  - MULTIPLE SCLEROSIS [None]
